FAERS Safety Report 23145081 (Version 2)
Quarter: 2023Q4

REPORT INFORMATION
  Report Type: Report from Study
  Country: BR (occurrence: BR)
  Receive Date: 20231103
  Receipt Date: 20231120
  Transmission Date: 20240109
  Serious: Yes (Hospitalization)
  Sender: FDA-Public Use
  Company Number: BR-JNJFOC-20231000461

PATIENT
  Age: 59 Year
  Sex: Male
  Weight: 69 kg

DRUGS (10)
  1. DARATUMUMAB [Suspect]
     Active Substance: DARATUMUMAB
     Indication: Plasma cell myeloma
     Dosage: LAST DOSE WAS ON 25-SEP-2023
     Route: 058
     Dates: start: 20230925
  2. POMALIDOMIDE [Suspect]
     Active Substance: POMALIDOMIDE
     Indication: Plasma cell myeloma
     Dosage: LAST DOSE WAS ON 28-SEP-2023
     Route: 048
     Dates: start: 20230925
  3. DEXAMETHASONE [Suspect]
     Active Substance: DEXAMETHASONE
     Indication: Plasma cell myeloma
     Dosage: LAST DOSE WAS ON 25-SEP-2023
     Route: 048
     Dates: start: 20230925
  4. LEVOTHYROXINE [Concomitant]
     Active Substance: LEVOTHYROXINE
     Indication: Hypothyroidism
     Route: 048
     Dates: start: 20050101
  5. ASPIRIN [Concomitant]
     Active Substance: ASPIRIN
     Indication: Thrombosis prophylaxis
     Route: 048
     Dates: start: 20140225
  6. ACYCLOVIR [Concomitant]
     Active Substance: ACYCLOVIR
     Indication: Antiviral prophylaxis
     Route: 048
     Dates: start: 20140225
  7. BACTRIM [Concomitant]
     Active Substance: SULFAMETHOXAZOLE\TRIMETHOPRIM
     Indication: Antibiotic prophylaxis
     Route: 048
     Dates: start: 20140225
  8. OMEPRAZOLE [Concomitant]
     Active Substance: OMEPRAZOLE
     Indication: Gastrointestinal disorder therapy
     Route: 048
     Dates: start: 20140225
  9. BUPROPION [Concomitant]
     Active Substance: BUPROPION
     Indication: Depression
     Route: 048
     Dates: start: 20160101
  10. ERGOCALCIFEROL [Concomitant]
     Active Substance: ERGOCALCIFEROL
     Indication: Vitamin D deficiency
     Route: 048
     Dates: start: 20230601

REACTIONS (1)
  - COVID-19 [Recovered/Resolved]

NARRATIVE: CASE EVENT DATE: 20230930
